FAERS Safety Report 26200450 (Version 1)
Quarter: 2025Q4

REPORT INFORMATION
  Report Type: Spontaneous
  Country: EU (occurrence: None)
  Receive Date: 20251225
  Receipt Date: 20251225
  Transmission Date: 20260118
  Serious: Yes (Other)
  Sender: UCB
  Company Number: EU-UCBSA-2025081276

PATIENT
  Age: 85 Year

DRUGS (1)
  1. NEUPRO [Suspect]
     Active Substance: ROTIGOTINE
     Indication: Parkinson^s disease
     Dosage: 2 MILLIGRAM, UNK

REACTIONS (3)
  - Parkinson^s disease [Unknown]
  - Application site irritation [Unknown]
  - Application site pruritus [Unknown]
